FAERS Safety Report 5584937-6 (Version None)
Quarter: 2007Q4

REPORT INFORMATION
  Report Type: 
  Country: None (occurrence: None)
  Receive Date: 20071130
  Receipt Date: 20061003
  Transmission Date: 20080405
  Serious: Yes (Other)
  Sender: FDA-Public Use
  Company Number: WAES 0608USA02546

PATIENT
  Age: 54 Year
  Sex: Female
  Weight: 39.4629 kg

DRUGS (7)
  1. FOSAMAX [Suspect]
     Indication: OSTEOPOROSIS
     Dosage: 70 MG/WKY/PO
     Route: 048
  2. ADVAIR DISKUS 100/50 [Concomitant]
  3. ATIVAN [Concomitant]
  4. BUSPAR [Concomitant]
  5. LEXAPRO [Concomitant]
  6. LIPITOR [Concomitant]
  7. FOLIC ACID [Concomitant]

REACTIONS (1)
  - OSTEONECROSIS [None]
